FAERS Safety Report 8391867-3 (Version None)
Quarter: 2012Q2

REPORT INFORMATION
  Report Type: 
  Country: None (occurrence: None)
  Receive Date: 20120525
  Receipt Date: 20120525
  Transmission Date: 20120825
  Serious: Yes (Other)
  Sender: FDA-Public Use
  Company Number: None

PATIENT
  Age: 47 Year
  Sex: Female
  Weight: 62.1428 kg

DRUGS (3)
  1. VIIBRYD [Suspect]
     Indication: ANXIETY
     Dosage: 10 MG ONCE/DAY ORAL
     Route: 048
     Dates: start: 20120417, end: 20120420
  2. VIIBRYD [Suspect]
     Indication: DEPRESSION
     Dosage: 10 MG ONCE/DAY ORAL
     Route: 048
     Dates: start: 20120417, end: 20120420
  3. OXYCODONE HYDROCHLORIDE [Suspect]
     Indication: PAIN
     Dosage: 10 MG EVERY 4 HRS ORAL
     Route: 048
     Dates: start: 20120517, end: 20120501

REACTIONS (16)
  - PALPITATIONS [None]
  - PAIN [None]
  - DYSKINESIA [None]
  - DEPRESSION [None]
  - CONDITION AGGRAVATED [None]
  - SUICIDAL IDEATION [None]
  - IMPAIRED DRIVING ABILITY [None]
  - MALAISE [None]
  - DIARRHOEA [None]
  - ANXIETY [None]
  - ABDOMINAL PAIN [None]
  - DIZZINESS [None]
  - MUSCLE SPASTICITY [None]
  - HEADACHE [None]
  - NAUSEA [None]
  - CHILLS [None]
